FAERS Safety Report 21061346 (Version 1)
Quarter: 2022Q3

REPORT INFORMATION
  Report Type: Spontaneous
  Country: CA (occurrence: CA)
  Receive Date: 20220709
  Receipt Date: 20220709
  Transmission Date: 20221027
  Serious: Yes (Other)
  Sender: FDA-Public Use
  Company Number: CA-TEVA-2022-CA-2051945

PATIENT

DRUGS (1)
  1. MYCOPHENOLATE MOFETIL [Suspect]
     Active Substance: MYCOPHENOLATE MOFETIL
     Indication: Product used for unknown indication
     Route: 065

REACTIONS (8)
  - Breast cancer [Unknown]
  - Colon cancer [Unknown]
  - Leukaemia [Unknown]
  - Lung neoplasm malignant [Unknown]
  - Lymphoma [Unknown]
  - Neoplasm malignant [Unknown]
  - Prostate cancer [Unknown]
  - Skin cancer [Unknown]
